FAERS Safety Report 7278349-7 (Version None)
Quarter: 2011Q1

REPORT INFORMATION
  Report Type: 
  Country: None (occurrence: None)
  Receive Date: 20110207
  Receipt Date: 20110131
  Transmission Date: 20110831
  Serious: Yes (Hospitalization)
  Sender: FDA-Public Use
  Company Number: US-RANBAXY-2011US-41511

PATIENT

DRUGS (8)
  1. EUCREAS [Concomitant]
     Indication: TYPE 2 DIABETES MELLITUS
     Dosage: 50/850 MG
     Route: 065
  2. MANIDON [Suspect]
     Indication: HYPERTENSION
     Dosage: 80 MG, QD
     Route: 048
     Dates: start: 20000101, end: 20101013
  3. CRESTOR [Suspect]
     Indication: DYSLIPIDAEMIA
     Dosage: 20 MG, QD
     Route: 048
     Dates: start: 20060101, end: 20101013
  4. COLCHIMAX [Suspect]
     Indication: HYPERURICAEMIA
     Dosage: 2 DOSAGE FORM,  BID
     Route: 048
     Dates: start: 20000101, end: 20101005
  5. POTASSIUM CITRATE [Concomitant]
     Indication: PRODUCT USED FOR UNKNOWN INDICATION
     Dosage: 1 G, QD
     Dates: start: 20091101, end: 20101013
  6. CLARITHROMYCIN [Suspect]
     Indication: ORGANISING PNEUMONIA
     Dosage: UNK
     Route: 065
     Dates: start: 20100924, end: 20101005
  7. ALOPURINOL MUNDOGEN 100 MG COMPRIMIDOS EFG [Suspect]
     Indication: HYPERURICAEMIA
     Dosage: 100 MG, QD
     Route: 048
  8. CEFTRIAXONE SODIUM [Concomitant]
     Indication: ORGANISING PNEUMONIA
     Dosage: UNK, UNK
     Route: 065

REACTIONS (3)
  - LEFT VENTRICULAR DYSFUNCTION [None]
  - RENAL FAILURE ACUTE [None]
  - RHABDOMYOLYSIS [None]
